FAERS Safety Report 9300572 (Version 1)
Quarter: 2013Q2

REPORT INFORMATION
  Report Type: Spontaneous
  Country: US (occurrence: US)
  Receive Date: 20130521
  Receipt Date: 20130521
  Transmission Date: 20140414
  Serious: Yes (Other)
  Sender: FDA-Public Use
  Company Number: PHEH2013US011013

PATIENT
  Sex: Male

DRUGS (17)
  1. TEKTURNA [Suspect]
     Dosage: 300 MG, QD
  2. METOPROLOL [Concomitant]
     Dosage: 300 MG, QD
  3. AGGRENOX [Concomitant]
  4. ECOTRIN [Concomitant]
     Dosage: 325 MG, QD
  5. ALDACTAZIDE [Concomitant]
  6. AZOR                               /06230801/ [Concomitant]
  7. LANTUS [Concomitant]
  8. HUMALOG [Concomitant]
  9. ALLOPURINOL [Concomitant]
     Dosage: 100 MG, QD
  10. ASPIRIN [Concomitant]
     Dosage: 325 MG, QD
  11. AZOR                               /06230801/ [Concomitant]
  12. CLONIDINE HCL [Concomitant]
     Dosage: 0.2 MG, TID
  13. COREG [Concomitant]
     Dosage: 12.5 MG, BID
  14. KEPPRA [Concomitant]
     Dosage: 250 MG, BID
  15. LASIX [Concomitant]
     Dosage: 40 MG, BID
  16. LISINOPRIL [Concomitant]
     Dosage: 20 MG, QD
  17. NEURONTIN [Concomitant]
     Dosage: 300 MG, QD

REACTIONS (19)
  - Cerebrovascular accident [Unknown]
  - Ataxia [Unknown]
  - Hemiplegia [Unknown]
  - Muscular weakness [Unknown]
  - Diabetes mellitus inadequate control [Unknown]
  - Aqueductal stenosis [Unknown]
  - Pericardial effusion [Unknown]
  - Mitral valve incompetence [Unknown]
  - Diabetic retinopathy [Unknown]
  - Diabetic neuropathy [Unknown]
  - Chronic obstructive pulmonary disease [Unknown]
  - Mumps [Unknown]
  - Renal failure chronic [Unknown]
  - Oedema peripheral [Unknown]
  - Oedema [Unknown]
  - Arthritis [Unknown]
  - Hyperlipidaemia [Unknown]
  - Hypertension [Unknown]
  - Gout [Unknown]
